FAERS Safety Report 4450197-2 (Version None)
Quarter: 2004Q3

REPORT INFORMATION
  Report Type: 
  Country: None (occurrence: None)
  Receive Date: 20040914
  Receipt Date: 20040913
  Transmission Date: 20050211
  Serious: Yes (Death)
  Sender: FDA-Public Use
  Company Number: A403225410/PHBS2004ES08

PATIENT
  Age: 82 Year
  Sex: Female

DRUGS (7)
  1. AK-FLUOR 10% [Suspect]
     Indication: ANGIOGRAM RETINA
     Dosage: ONCE/SINGLE, IV BOLUS
     Route: 042
     Dates: start: 20040615
  2. TRANGOREX (AMIODARONE HCL) [Concomitant]
  3. NITRODERM [Concomitant]
  4. SERC [Concomitant]
  5. FLUTICASONE PROPIONATE W/SALMETEROL [Concomitant]
  6. ASPIRIN [Concomitant]
  7. NSAID'S [Concomitant]

REACTIONS (3)
  - ANAPHYLACTIC SHOCK [None]
  - HYPOTONIA [None]
  - LOSS OF CONSCIOUSNESS [None]
